FAERS Safety Report 13233304 (Version 1)
Quarter: 2017Q1

REPORT INFORMATION
  Report Type: Spontaneous
  Country: GB (occurrence: GB)
  Receive Date: 20170215
  Receipt Date: 20170215
  Transmission Date: 20170428
  Serious: Yes (Other)
  Sender: FDA-Public Use
  Company Number: GB-ACCORD-048112

PATIENT
  Age: 82 Year
  Sex: Female
  Weight: 52 kg

DRUGS (11)
  1. EZETIMIBE. [Concomitant]
     Active Substance: EZETIMIBE
     Dates: start: 20160909
  2. OPTIVE [Concomitant]
     Active Substance: CARBOXYMETHYLCELLULOSE SODIUM\GLYCERIN
     Dosage: USE AS DIRECTED.
     Dates: start: 20160909
  3. ASPIRIN. [Concomitant]
     Active Substance: ASPIRIN
     Dates: start: 20160909
  4. CODEINE PHOSPHATE/PARACETAMOL [Concomitant]
     Dosage: TAKE 1 OR 2 4 TIMES A DAY.
     Dates: start: 20161228, end: 20161229
  5. QUININE [Concomitant]
     Active Substance: QUININE
     Dosage: AT NIGHT.
     Dates: start: 20161228
  6. BENDROFLUMETHIAZIDE [Concomitant]
     Active Substance: BENDROFLUMETHIAZIDE
     Dosage: EACH MORNING.
     Dates: start: 20160909
  7. DOXYCYCLINE. [Concomitant]
     Active Substance: DOXYCYCLINE
     Dosage: TWO NOW THEN ONE DAILY.
     Dates: start: 20170106, end: 20170113
  8. LEVOTHYROXINE. [Concomitant]
     Active Substance: LEVOTHYROXINE
     Dosage: EACH MORNING.
     Dates: start: 20160909
  9. LISINOPRIL. [Concomitant]
     Active Substance: LISINOPRIL
     Dosage: IN THE MORNING.
     Dates: start: 20160909
  10. ALLOPURINOL. [Suspect]
     Active Substance: ALLOPURINOL
     Indication: PRODUCT USED FOR UNKNOWN INDICATION
     Dates: start: 20161005
  11. CLINITAS [Concomitant]
     Dosage: INTO THE RIGHT EYE ONLY.
     Route: 050
     Dates: start: 20160909

REACTIONS (2)
  - Diarrhoea [Recovered/Resolved]
  - Tremor [Unknown]

NARRATIVE: CASE EVENT DATE: 20170120
